FAERS Safety Report 10381782 (Version 2)
Quarter: 2015Q1

REPORT INFORMATION
  Report Type: Spontaneous
  Country: US (occurrence: US)
  Receive Date: 20140813
  Receipt Date: 20150305
  Transmission Date: 20150720
  Serious: Yes (Life-Threatening, Hospitalization, Other)
  Sender: FDA-Public Use
  Company Number: US-ASTRAZENECA-2014SE57170

PATIENT
  Age: 62 Year
  Sex: Male
  Weight: 74.8 kg

DRUGS (10)
  1. TOPROL XL [Suspect]
     Active Substance: METOPROLOL SUCCINATE
     Route: 048
  2. PLAVIX [Concomitant]
     Active Substance: CLOPIDOGREL BISULFATE
     Indication: ANTICOAGULANT THERAPY
     Route: 048
  3. ASPIRIN. [Suspect]
     Active Substance: ASPIRIN
     Indication: ANTICOAGULANT THERAPY
     Route: 048
     Dates: start: 1999, end: 2014
  4. VASOTEC [Concomitant]
     Active Substance: ENALAPRIL MALEATE
     Indication: BLOOD PRESSURE ABNORMAL
     Route: 048
  5. SPIRIVA [Concomitant]
     Active Substance: TIOTROPIUM BROMIDE MONOHYDRATE
     Indication: CHRONIC OBSTRUCTIVE PULMONARY DISEASE
     Dosage: STANDARD DAILY
     Route: 055
     Dates: start: 2013
  6. ZOCOR [Concomitant]
     Active Substance: SIMVASTATIN
     Route: 048
  7. SYMBICORT [Suspect]
     Active Substance: BUDESONIDE\FORMOTEROL FUMARATE DIHYDRATE
     Indication: CHRONIC OBSTRUCTIVE PULMONARY DISEASE
     Dosage: 160/4.5 MCG, 2 PUFFS DAILY
     Route: 055
     Dates: start: 2013
  8. SYMBICORT [Suspect]
     Active Substance: BUDESONIDE\FORMOTEROL FUMARATE DIHYDRATE
     Indication: CHRONIC OBSTRUCTIVE PULMONARY DISEASE
     Dosage: 160/4.5 MCG, 2 PUFFS BID
     Route: 055
     Dates: start: 2014, end: 201407
  9. DYAZIDE [Concomitant]
     Active Substance: HYDROCHLOROTHIAZIDE\TRIAMTERENE
     Indication: BLOOD CHOLESTEROL ABNORMAL
     Dosage: 37.5/25 MG CP DAILY
     Route: 048
     Dates: start: 20130720
  10. AMIODARONE [Concomitant]
     Active Substance: AMIODARONE
     Route: 048

REACTIONS (10)
  - Sexual dysfunction [Unknown]
  - Abdominal distension [Unknown]
  - Contusion [Unknown]
  - Drug dose omission [Unknown]
  - Apparent death [Unknown]
  - Off label use [Recovered/Resolved]
  - Intentional product misuse [Unknown]
  - Dyspnoea [Unknown]
  - Myocardial infarction [Unknown]
  - Malaise [Unknown]

NARRATIVE: CASE EVENT DATE: 2013
